FAERS Safety Report 7320337-6 (Version None)
Quarter: 2011Q1

REPORT INFORMATION
  Report Type: 
  Country: None (occurrence: None)
  Receive Date: 20110223
  Receipt Date: 20110223
  Transmission Date: 20110831
  Serious: Yes (Other)
  Sender: FDA-Public Use
  Company Number: None

PATIENT
  Sex: Female
  Weight: 74 kg

DRUGS (12)
  1. DOCUSATE [Concomitant]
  2. TYLENOL [Concomitant]
  3. TYLENOL [Concomitant]
  4. NS [Concomitant]
  5. LARAZEPAM [Concomitant]
  6. MORPHINE [Concomitant]
  7. HUMAN ALBUMIN GRIFOLS 20% [Suspect]
     Dosage: 1.875G/KG ONCE DAILY X7 DAYS
     Dates: start: 20091212, end: 20091212
  8. ONDANSETRON [Concomitant]
  9. ELECTROLYTES [Concomitant]
  10. NIMODIPINE [Concomitant]
  11. BISACODYL [Concomitant]
  12. GRAVOL TAB [Concomitant]

REACTIONS (2)
  - SUBARACHNOID HAEMORRHAGE [None]
  - RESPIRATORY DISTRESS [None]
